FAERS Safety Report 4300124-3 (Version None)
Quarter: 2004Q1

REPORT INFORMATION
  Report Type: 
  Country: None (occurrence: None)
  Receive Date: 20040218
  Receipt Date: 20040205
  Transmission Date: 20041129
  Serious: Yes (Hospitalization)
  Sender: FDA-Public Use
  Company Number: 2004JP000200

PATIENT
  Age: 47 Year
  Sex: Male

DRUGS (5)
  1. PROGRAF [Suspect]
     Indication: RENAL TRANSPLANT
     Dosage: 3 MG, ORAL
     Route: 048
     Dates: start: 20030417
  2. PROGRAF [Suspect]
     Indication: RENAL TRANSPLANT
     Dates: start: 20000323, end: 20030416
  3. PROGRAF [Suspect]
     Indication: RENAL TRANSPLANT
     Dosage: 22 MG, UID/QD, ORAL
     Route: 048
     Dates: start: 19961112, end: 19961113
  4. PROGRAF [Suspect]
     Indication: RENAL TRANSPLANT
     Dosage: 7 MG, UID/QD, INTRAVENOUS
     Route: 042
     Dates: start: 19961114, end: 19961114
  5. PROGRAF [Suspect]
     Indication: RENAL TRANSPLANT
     Dosage: BID, ORAL
     Route: 048
     Dates: start: 19961115, end: 19990407

REACTIONS (4)
  - CARDIAC DISORDER [None]
  - KIDNEY TRANSPLANT REJECTION [None]
  - MYOCARDIAL INFARCTION [None]
  - RENAL FAILURE CHRONIC [None]
